FAERS Safety Report 21698706 (Version 3)
Quarter: 2023Q1

REPORT INFORMATION
  Report Type: Other
  Country: CA (occurrence: None)
  Receive Date: 20221208
  Receipt Date: 20230221
  Transmission Date: 20230417
  Serious: Yes (Hospitalization, Other)
  Sender: FDA-Public Use
  Company Number: CA-ROCHE-3230928

PATIENT
  Age: 44 Year
  Sex: Male

DRUGS (5)
  1. OCREVUS [Suspect]
     Active Substance: OCRELIZUMAB
     Indication: Relapsing-remitting multiple sclerosis
     Dosage: DOSAGE INFORMATION IS 300 MG AT DAY 0 AND 14, THEN 600 MG EVERY 6 MONTH
     Route: 042
     Dates: start: 20201126
  2. TOVIAZ [Concomitant]
     Active Substance: FESOTERODINE FUMARATE
  3. TAMSULOSIN [Concomitant]
     Active Substance: TAMSULOSIN
  4. DALFAMPRIDINE [Concomitant]
     Active Substance: DALFAMPRIDINE
     Route: 048
     Dates: start: 202205, end: 20220828
  5. INFLUENZA VIRUS VACCINE [Concomitant]
     Active Substance: INFLUENZA VIRUS VACCINE

REACTIONS (6)
  - SARS-CoV-2 test positive [Recovered/Resolved]
  - Mobility decreased [Unknown]
  - Pyrexia [Recovered/Resolved with Sequelae]
  - Multiple sclerosis [Recovered/Resolved with Sequelae]
  - Muscular weakness [Recovered/Resolved]
  - Pulmonary mass [Unknown]

NARRATIVE: CASE EVENT DATE: 20220823
